FAERS Safety Report 18886350 (Version 1)
Quarter: 2021Q1

REPORT INFORMATION
  Report Type: Spontaneous
  Country: IN (occurrence: IN)
  Receive Date: 20210212
  Receipt Date: 20210212
  Transmission Date: 20210420
  Serious: Yes (Hospitalization)
  Sender: FDA-Public Use
  Company Number: IN-PFIZER INC-2020473669

PATIENT
  Age: 68 Year
  Sex: Male
  Weight: 46.3 kg

DRUGS (23)
  1. DACOPLICE [Suspect]
     Active Substance: DACOMITINIB
     Dosage: 30MG/45 MG ALTERNATE DAY
     Dates: start: 20200528
  2. HYDROCORTISONE. [Concomitant]
     Active Substance: HYDROCORTISONE
     Indication: RASH
     Dosage: UNK
  3. PYRIGESIC [Concomitant]
     Indication: HEADACHE
     Dosage: 650 MG, SOS
  4. PAN [Concomitant]
     Dosage: 40 MG, 1X/DAY, FOR 5 DAYS
  5. ZYTEE [BENZALKONIUM CHLORIDE;CHOLINE SALICYLATE] [Concomitant]
     Dosage: OINTMENT APPLY LOCALLY
  6. LEVERA [LEVETIRACETAM] [Concomitant]
     Dosage: 500 MG, 2X/DAY
  7. LOPERAMIDE [Concomitant]
     Active Substance: LOPERAMIDE
     Indication: DIARRHOEA
     Dosage: 2 MG, SOS
  8. DACOPLICE [Suspect]
     Active Substance: DACOMITINIB
     Dosage: 45 MG, 1X/DAY
     Route: 048
     Dates: start: 20210122
  9. ALLEGRA [Concomitant]
     Active Substance: FEXOFENADINE HYDROCHLORIDE
     Indication: RASH
     Dosage: 120 MG, 1X/DAY
  10. DUPHALAC [Concomitant]
     Active Substance: LACTULOSE
     Dosage: 15 ML TWICE DAILY
  11. ANOVATE [BETAMETHASONE VALERATE;LIDOCAINE HYDROCHLORIDE;PHENYLEPHRINE [Concomitant]
     Dosage: APPLY PERI?ANAL AREA
     Route: 054
  12. ALLEGRA [Concomitant]
     Active Substance: FEXOFENADINE HYDROCHLORIDE
     Indication: PRURITUS
  13. ONDEM [Concomitant]
     Dosage: 4 MG, 1X/DAY, FOR 5 DAYS
  14. TRAMADOL. [Concomitant]
     Active Substance: TRAMADOL
     Dosage: 50 MG, TDS FOR 5 DAYS
  15. DACOPLICE [Suspect]
     Active Substance: DACOMITINIB
     Indication: LUNG ADENOCARCINOMA
     Dosage: 45 MG DAILY
     Dates: start: 20200101
  16. DACOPLICE [Suspect]
     Active Substance: DACOMITINIB
     Dosage: 15 MG 3 TAB , 1X/DAY
     Route: 048
     Dates: start: 20201110
  17. FAMOTIDINE. [Concomitant]
     Active Substance: FAMOTIDINE
     Dosage: 20 MG, BDAC
  18. DACOPLICE [Suspect]
     Active Substance: DACOMITINIB
     Dosage: 45 MG, 1X/DAY (ONE HOUR BEFORE FOOD) X 3 MONTHS
     Route: 048
     Dates: start: 2020
  19. ATIVAN [Concomitant]
     Active Substance: LORAZEPAM
     Indication: CONSTIPATION
     Dosage: 1 MG AT BEDTIME (IF CONSTIPATION)
  20. DACOPLICE [Suspect]
     Active Substance: DACOMITINIB
     Dosage: 45 MG DAILY
     Dates: start: 20200929
  21. DOXYCYCLINE. [Concomitant]
     Active Substance: DOXYCYCLINE
     Dosage: 100 MG, 1X/DAY
  22. ENDACE [Concomitant]
     Active Substance: MEGESTROL ACETATE
     Dosage: 100 MG, 2X/DAY
  23. URIMAX [TAMSULOSIN HYDROCHLORIDE] [Concomitant]
     Dosage: 0.4 ? AT BEDTIME

REACTIONS (10)
  - Vertigo [Unknown]
  - Respiratory distress [Unknown]
  - Urinary incontinence [Unknown]
  - Asthenia [Unknown]
  - Stomatitis [Unknown]
  - Fall [Unknown]
  - Back pain [Unknown]
  - Ischaemia [Unknown]
  - Blood pressure increased [Unknown]
  - Diarrhoea [Unknown]

NARRATIVE: CASE EVENT DATE: 20200101
